FAERS Safety Report 8583893-6 (Version None)
Quarter: 2012Q3

REPORT INFORMATION
  Report Type: 
  Country: None (occurrence: None)
  Receive Date: 20120810
  Receipt Date: 20120802
  Transmission Date: 20120928
  Serious: Yes (Death, Life-Threatening, Hospitalization, Disabling, Other)
  Sender: FDA-Public Use
  Company Number: US-009507513-2011SP058154

PATIENT

DRUGS (2)
  1. NUVARING [Suspect]
     Indication: CONTRACEPTION
     Dosage: 50 MIC ESTROGEN 120 ETONOGESTREL/ONCE A MONTH
     Route: 067
     Dates: start: 20070801, end: 20111101
  2. NUVARING [Suspect]

REACTIONS (6)
  - CARDIAC ARREST [None]
  - HORMONE LEVEL ABNORMAL [None]
  - MYOCARDIAL INFARCTION [None]
  - THROMBOSIS [None]
  - PULMONARY EMBOLISM [None]
  - DEEP VEIN THROMBOSIS [None]
